FAERS Safety Report 5318234-0 (Version None)
Quarter: 2007Q2

REPORT INFORMATION
  Report Type: 
  Country: None (occurrence: None)
  Receive Date: 20070507
  Receipt Date: 20070504
  Transmission Date: 20071010
  Serious: Yes (Other)
  Sender: FDA-Public Use
  Company Number: GB-BRISTOL-MYERS SQUIBB COMPANY-13769872

PATIENT
  Sex: Female

DRUGS (1)
  1. COAPROVEL [Suspect]
     Dosage: DOSING WAS 150/12.5 MG DAILY FOR THE PAST 3 YEARS.

REACTIONS (1)
  - HYPERCALCAEMIA [None]
